FAERS Safety Report 23932784 (Version 1)
Quarter: 2024Q2

REPORT INFORMATION
  Report Type: Spontaneous
  Country: US (occurrence: None)
  Receive Date: 20240601
  Receipt Date: 20240601
  Transmission Date: 20240715
  Serious: No
  Sender: FDA-Public Use
  Company Number: None

PATIENT
  Age: 71 Year
  Sex: Male
  Weight: 106.2 kg

DRUGS (1)
  1. KETOCONAZOLE CREAM, 2% [Suspect]
     Active Substance: KETOCONAZOLE
     Indication: Tinea infection
     Dosage: 30 ONCE DAILY TOPICAL
     Route: 061
     Dates: start: 20240528, end: 20240531

REACTIONS (3)
  - Urticaria [None]
  - Vertigo [None]
  - Dizziness [None]

NARRATIVE: CASE EVENT DATE: 20240529
